FAERS Safety Report 4778000-1 (Version None)
Quarter: 2005Q3

REPORT INFORMATION
  Report Type: 
  Country: None (occurrence: None)
  Receive Date: 20050921
  Receipt Date: 20050902
  Transmission Date: 20060218
  Serious: Yes (Death, Hospitalization)
  Sender: FDA-Public Use
  Company Number: EWC050945631

PATIENT
  Age: 61 Year
  Sex: Male
  Weight: 55 kg

DRUGS (4)
  1. OLANZAPINE [Suspect]
     Indication: AGITATION
     Dosage: 10 MG DAY
     Dates: start: 20050817, end: 20050818
  2. RISPERIDONE [Concomitant]
  3. DIAZEPAM [Concomitant]
  4. MIDAZOLAM [Concomitant]

REACTIONS (5)
  - ARRHYTHMIA [None]
  - BLOOD PRESSURE IMMEASURABLE [None]
  - FALL [None]
  - RESPIRATORY RATE INCREASED [None]
  - SUDDEN DEATH [None]
